FAERS Safety Report 5306392-3 (Version None)
Quarter: 2007Q2

REPORT INFORMATION
  Report Type: 
  Country: None (occurrence: None)
  Receive Date: 20070419
  Receipt Date: 20070404
  Transmission Date: 20071010
  Serious: Yes (Hospitalization)
  Sender: FDA-Public Use
  Company Number: SPV1-2007-02121

PATIENT
  Age: 79 Year
  Sex: Male

DRUGS (4)
  1. MIDODRINE HYDROCHLORIDE [Suspect]
     Indication: ORTHOSTATIC HYPOTENSION
     Dosage: ORAL
     Route: 048
     Dates: start: 20061206, end: 20061215
  2. EXELON [Suspect]
     Indication: PSYCHOTIC DISORDER
     Dosage: ORAL
     Route: 048
     Dates: start: 20061212, end: 20061218
  3. FLUDROCORTISONE ACETATE [Suspect]
     Indication: ORTHOSTATIC HYPOTENSION
     Dosage: ORAL
     Route: 048
     Dates: start: 20061216, end: 20061219
  4. KARDEGIC /00002703/(ACETYLSALICYLATE LYSINE) [Suspect]
     Dosage: ORAL
     Route: 048
     Dates: start: 20061212

REACTIONS (2)
  - AGITATION [None]
  - CONFUSIONAL STATE [None]
